FAERS Safety Report 4751844-8 (Version None)
Quarter: 2005Q3

REPORT INFORMATION
  Report Type: 
  Country: None (occurrence: None)
  Receive Date: 20050822
  Receipt Date: 20050513
  Transmission Date: 20060218
  Serious: Yes (Other)
  Sender: FDA-Public Use
  Company Number: PHEH2005US05274

PATIENT
  Age: 58 Year
  Sex: Female

DRUGS (4)
  1. ZELNORM [Suspect]
     Indication: CONSTIPATION
     Dosage: 6MG, ORAL
     Route: 048
     Dates: start: 20050430, end: 20050509
  2. DESIPRAMINE HCL [Concomitant]
  3. ATIVAN [Concomitant]
  4. BACTRIM [Concomitant]

REACTIONS (3)
  - ANGER [None]
  - CRYING [None]
  - DEPRESSION [None]
